FAERS Safety Report 8482249-4 (Version None)
Quarter: 2012Q3

REPORT INFORMATION
  Report Type: 
  Country: None (occurrence: None)
  Receive Date: 20120702
  Receipt Date: 20120625
  Transmission Date: 20120928
  Serious: Yes (Other)
  Sender: FDA-Public Use
  Company Number: FR-PFIZER INC-2012153206

PATIENT
  Age: 48 Year
  Sex: Female

DRUGS (1)
  1. SUNITINIB MALATE [Suspect]
     Indication: METASTASES TO BONE
     Dosage: 37.5 MG DAILY (4 WEEKS OUT OF 6)

REACTIONS (3)
  - PNEUMATOSIS INTESTINALIS [None]
  - SKIN DISORDER [None]
  - DIARRHOEA [None]
